FAERS Safety Report 4850194-9 (Version None)
Quarter: 2005Q4

REPORT INFORMATION
  Report Type: 
  Country: None (occurrence: None)
  Receive Date: 20051123
  Receipt Date: 20050707
  Transmission Date: 20060501
  Serious: Yes (Other)
  Sender: FDA-Public Use
  Company Number: 2005074610

PATIENT
  Age: 63 Year
  Sex: Female
  Weight: 81.6475 kg

DRUGS (3)
  1. LIPITOR [Suspect]
     Indication: BLOOD CHOLESTEROL
     Dosage: 20 MG (20 MG, 1 IN 1 D), ORAL
     Route: 048
     Dates: start: 20050427, end: 20050508
  2. VICODIN [Concomitant]
  3. TRIAMTERENE (TRIAMTERENE) [Concomitant]

REACTIONS (11)
  - ASTHENIA [None]
  - COLD SWEAT [None]
  - DYSSTASIA [None]
  - FEELING ABNORMAL [None]
  - HEART RATE ABNORMAL [None]
  - LOSS OF CONSCIOUSNESS [None]
  - MALAISE [None]
  - MEMORY IMPAIRMENT [None]
  - NAUSEA [None]
  - STUPOR [None]
  - VISUAL DISTURBANCE [None]
